FAERS Safety Report 7561355-2 (Version None)
Quarter: 2011Q2

REPORT INFORMATION
  Report Type: 
  Country: None (occurrence: None)
  Receive Date: 20110621
  Receipt Date: 20100604
  Transmission Date: 20111010
  Serious: No
  Sender: FDA-Public Use
  Company Number: US-ASTRAZENECA-2010SE26215

PATIENT
  Sex: Male

DRUGS (2)
  1. PULMICORT FLEXHALER [Suspect]
     Indication: ASTHMA
     Dosage: 360 MCG BID
     Route: 055
     Dates: start: 20100501, end: 20100602
  2. ALBUTEROL SULFATE AUTOHALER [Concomitant]

REACTIONS (1)
  - DYSPNOEA [None]
